FAERS Safety Report 9635466 (Version 1)
Quarter: 2013Q4

REPORT INFORMATION
  Report Type: Spontaneous
  Country: US (occurrence: US)
  Receive Date: 20131021
  Receipt Date: 20131021
  Transmission Date: 20140711
  Serious: Yes (Hospitalization)
  Sender: FDA-Public Use
  Company Number: US-BAYER-2013-125545

PATIENT
  Sex: Male

DRUGS (2)
  1. AVELOX [Suspect]
     Indication: SINUSITIS
     Dosage: 1 DF, QD
     Route: 048
     Dates: start: 200807
  2. NASONEX [Concomitant]

REACTIONS (1)
  - Tendon operation [Not Recovered/Not Resolved]
